FAERS Safety Report 4884574-2 (Version None)
Quarter: 2005Q4

REPORT INFORMATION
  Report Type: 
  Country: None (occurrence: None)
  Receive Date: 20051201
  Receipt Date: 20050905
  Transmission Date: 20060501
  Serious: No
  Sender: FDA-Public Use
  Company Number: 2005PV001580

PATIENT
  Age: 55 Year
  Sex: Female
  Weight: 81.6475 kg

DRUGS (10)
  1. BYETTA [Suspect]
     Indication: DIABETES MELLITUS NON-INSULIN-DEPENDENT
     Dosage: 10 MCG; BID; SC;
     Route: 058
     Dates: start: 20050716, end: 20050816
  2. BYETTA [Suspect]
     Indication: DIABETES MELLITUS NON-INSULIN-DEPENDENT
     Dosage: 10 MCG; BID; SC;
     Route: 058
     Dates: start: 20050817
  3. GLUCOPHAGE [Concomitant]
  4. TRICOR [Concomitant]
  5. VASOTEC [Concomitant]
  6. MEVACOR [Concomitant]
  7. OGEN [Concomitant]
  8. ANTIVERT    PFIZER [Concomitant]
  9. DYAZIDE [Concomitant]
  10. PAMELOR [Concomitant]

REACTIONS (3)
  - PHOTOSENSITIVITY REACTION [None]
  - RASH PAPULAR [None]
  - URTICARIA [None]
